FAERS Safety Report 22245793 (Version 5)
Quarter: 2023Q4

REPORT INFORMATION
  Report Type: Spontaneous
  Country: US (occurrence: US)
  Receive Date: 20230424
  Receipt Date: 20231019
  Transmission Date: 20240109
  Serious: Yes (Hospitalization, Other)
  Sender: FDA-Public Use
  Company Number: US-SA-SAC20230424000210

PATIENT
  Age: 49 Year
  Sex: Female

DRUGS (1)
  1. DUPIXENT [Suspect]
     Active Substance: DUPILUMAB
     Indication: Asthma
     Dosage: 300 MG, QOW
     Route: 058
     Dates: start: 20230118

REACTIONS (8)
  - Pneumonia bacterial [Unknown]
  - Respiratory distress [Unknown]
  - Respiratory failure [Unknown]
  - Asthma [Not Recovered/Not Resolved]
  - Injection site warmth [Unknown]
  - Dysphonia [Unknown]
  - Injection site rash [Recovered/Resolved]
  - Injection site erythema [Unknown]

NARRATIVE: CASE EVENT DATE: 20230101
